FAERS Safety Report 5937940-8 (Version None)
Quarter: 2008Q4

REPORT INFORMATION
  Report Type: 
  Country: None (occurrence: None)
  Receive Date: 20081031
  Receipt Date: 20081020
  Transmission Date: 20090506
  Serious: Yes (Other)
  Sender: FDA-Public Use
  Company Number: US-PFIZER INC-2008029947

PATIENT
  Sex: Male

DRUGS (8)
  1. LYRICA [Suspect]
     Indication: NEURALGIA
     Dosage: FREQ:DAILY
     Dates: start: 20070701
  2. GLYBURIDE [Suspect]
     Indication: NEURALGIA
  3. GABAPENTIN [Suspect]
     Indication: NEURALGIA
     Dates: end: 20071001
  4. GABAPENTIN [Suspect]
     Indication: MUSCLE SPASMS
  5. CYMBALTA [Concomitant]
  6. ANALGESICS [Concomitant]
  7. MIRTAZAPINE [Concomitant]
  8. SYNTHROID [Concomitant]

REACTIONS (11)
  - CARPAL TUNNEL SYNDROME [None]
  - DIABETES MELLITUS [None]
  - EYE SWELLING [None]
  - GLAUCOMA [None]
  - OEDEMA PERIPHERAL [None]
  - PAIN [None]
  - SHOULDER OPERATION [None]
  - SKIN ATROPHY [None]
  - SWELLING FACE [None]
  - ULNAR TUNNEL SYNDROME [None]
  - WEIGHT INCREASED [None]
